FAERS Safety Report 10838846 (Version 2)
Quarter: 2015Q1

REPORT INFORMATION
  Report Type: Spontaneous
  Country: US (occurrence: None)
  Receive Date: 20150218
  Receipt Date: 20150318
  Transmission Date: 20150721
  Serious: Yes (Other)
  Sender: FDA-Public Use
  Company Number: NVST_00040_2014

PATIENT
  Age: 17 Year
  Sex: Female
  Weight: 78.93 kg

DRUGS (2)
  1. QVAR [Concomitant]
     Active Substance: BECLOMETHASONE DIPROPIONATE
  2. LARIN FE 1/20 [Suspect]
     Active Substance: ETHINYL ESTRADIOL\NORETHINDRONE ACETATE
     Indication: CONTRACEPTION
     Dosage: 1 DF QD  1/20 DAILY ORAL
     Route: 048
     Dates: start: 201404, end: 20140825

REACTIONS (2)
  - Systemic lupus erythematosus [None]
  - Alopecia [None]

NARRATIVE: CASE EVENT DATE: 201406
